FAERS Safety Report 14472724 (Version 1)
Quarter: 2018Q1

REPORT INFORMATION
  Report Type: Spontaneous
  Country: HK (occurrence: HK)
  Receive Date: 20180201
  Receipt Date: 20180201
  Transmission Date: 20180509
  Serious: Yes (Other)
  Sender: FDA-Public Use
  Company Number: HK-STRIDES ARCOLAB LIMITED-2018SP000644

PATIENT

DRUGS (17)
  1. PHENYLBUTAZONE [Suspect]
     Active Substance: PHENYLBUTAZONE
     Indication: PAIN
     Dosage: UNK, UNKNOWN
     Route: 065
  2. CHLORZOXAZONE. [Suspect]
     Active Substance: CHLORZOXAZONE
     Indication: PAIN
     Dosage: UNK, UNKNOWN
     Route: 065
  3. METOCLOPRAMIDE. [Suspect]
     Active Substance: METOCLOPRAMIDE
     Indication: PAIN
     Dosage: UNK, UNKNOWN
     Route: 065
  4. DIOXOPROMETHAZINE [Suspect]
     Active Substance: DIOXOPROMETHAZINE
     Indication: PAIN
     Dosage: UNK, UNKNOWN
     Route: 065
  5. THEOPHYLLINE [Suspect]
     Active Substance: THEOPHYLLINE ANHYDROUS
     Indication: PAIN
     Dosage: UNK, UNKNOWN
     Route: 065
  6. TRIMETHOPRIM. [Suspect]
     Active Substance: TRIMETHOPRIM
     Indication: PAIN
     Dosage: UNK, UNKNOWN
     Route: 065
  7. DICLOFENAC [Suspect]
     Active Substance: DICLOFENAC
     Indication: PAIN
     Dosage: UNK, UNKNOWN
     Route: 065
  8. PIROXICAM. [Suspect]
     Active Substance: PIROXICAM
     Indication: PAIN
     Dosage: UNK, UNKNOWN
     Route: 065
  9. PARACETAMOL [Suspect]
     Active Substance: ACETAMINOPHEN
     Indication: PAIN
     Dosage: UNK, UNKNOWN
     Route: 065
  10. CIMETIDINE [Suspect]
     Active Substance: CIMETIDINE
     Indication: PAIN
     Dosage: UNK, UNKNOWN
     Route: 065
  11. IBUPROFEN. [Suspect]
     Active Substance: IBUPROFEN
     Indication: PAIN
     Dosage: UNK
     Route: 065
  12. INDOMETHACIN                       /00003801/ [Suspect]
     Active Substance: INDOMETHACIN
     Indication: PAIN
     Dosage: UNK, UNKNOWN
     Route: 065
  13. PREDNISOLONE. [Suspect]
     Active Substance: PREDNISOLONE
     Indication: PAIN
     Dosage: UNK, UNKNOWN
     Route: 065
  14. NAPROXEN. [Suspect]
     Active Substance: NAPROXEN
     Indication: PAIN
     Dosage: UNK, UNKNOWN
     Route: 065
  15. CHLORPHENAMINE [Suspect]
     Active Substance: CHLORPHENIRAMINE MALEATE
     Indication: PAIN
     Dosage: UNK, UNKNOWN
     Route: 065
  16. NEFOPAM [Suspect]
     Active Substance: NEFOPAM
     Indication: PAIN
     Dosage: UNK, UNKNOWN
     Route: 065
  17. HYDROCHLOROTHIAZIDE. [Suspect]
     Active Substance: HYDROCHLOROTHIAZIDE
     Indication: PAIN
     Dosage: UNK, UNKNOWN
     Route: 065

REACTIONS (4)
  - Renal impairment [Unknown]
  - Secondary adrenocortical insufficiency [Unknown]
  - Peptic ulcer [Unknown]
  - Medication error [Unknown]
